FAERS Safety Report 5408377-5 (Version None)
Quarter: 2007Q3

REPORT INFORMATION
  Report Type: 
  Country: None (occurrence: None)
  Receive Date: 20070806
  Receipt Date: 20070724
  Transmission Date: 20080115
  Serious: Yes (Other)
  Sender: FDA-Public Use
  Company Number: 17085

PATIENT
  Age: 80 Year
  Sex: Female

DRUGS (11)
  1. PACLITAXEL [Suspect]
     Indication: OVARIAN CANCER
     Dosage: 135 MG/M2 FREQ
  2. PACLITAXEL [Suspect]
     Indication: OVARIAN CANCER
     Dosage: 135 MG/M2 FREQ OTHER
     Route: 050
  3. CARBOPLATIN [Suspect]
     Indication: OVARIAN CANCER
     Dosage: 4 AUC FREQ
  4. CARBOPLATIN [Suspect]
     Indication: OVARIAN CANCER
     Dosage: 4 AUC FREQ
  5. CYCLOPHOSPHAMIDE [Concomitant]
  6. CAELYX. MFR: NOT SPECIFIED [Concomitant]
  7. OXALIPLATIN [Concomitant]
  8. GEMCITABINE HCL [Concomitant]
  9. DIURETICS [Concomitant]
  10. NITRODERIVATIVES [Concomitant]
  11. OXYGEN [Concomitant]

REACTIONS (10)
  - ACUTE PULMONARY OEDEMA [None]
  - ANAEMIA [None]
  - CARDIAC FAILURE [None]
  - COMPUTERISED TOMOGRAM ABNORMAL [None]
  - JUGULAR VEIN DISTENSION [None]
  - LEFT VENTRICULAR DYSFUNCTION [None]
  - METASTASES TO GASTROINTESTINAL TRACT [None]
  - METASTASES TO LYMPH NODES [None]
  - PULMONARY CONGESTION [None]
  - RECTAL NEOPLASM [None]
